FAERS Safety Report 9241850 (Version 1)
Quarter: 2013Q2

REPORT INFORMATION
  Report Type: Spontaneous
  Country: BR (occurrence: BR)
  Receive Date: 20130419
  Receipt Date: 20130419
  Transmission Date: 20140414
  Serious: Yes (Death, Hospitalization, Other)
  Sender: FDA-Public Use
  Company Number: BR-JNJFOC-20130408777

PATIENT
  Age: 86 Year
  Sex: Female
  Weight: 68 kg

DRUGS (9)
  1. XARELTO [Suspect]
     Indication: PRODUCT USED FOR UNKNOWN INDICATION
     Route: 048
     Dates: start: 20130218, end: 2013
  2. SIMVASTATIN [Concomitant]
     Indication: BLOOD CHOLESTEROL ABNORMAL
     Route: 048
     Dates: start: 201211
  3. ANCORON [Concomitant]
     Indication: CARDIAC DISORDER
     Route: 048
     Dates: start: 201211
  4. MELOXICAM [Concomitant]
     Indication: PRODUCT USED FOR UNKNOWN INDICATION
     Route: 048
     Dates: start: 201211
  5. LOSARTAN [Concomitant]
     Indication: CARDIAC DISORDER
     Route: 048
     Dates: start: 201211
  6. FUROSEMIDE [Concomitant]
     Indication: PRODUCT USED FOR UNKNOWN INDICATION
     Route: 048
     Dates: start: 201211
  7. MONOCORDIL [Concomitant]
     Indication: CARDIAC DISORDER
     Route: 048
     Dates: start: 201211
  8. ENALAPRIL [Concomitant]
     Indication: CARDIAC DISORDER
     Route: 048
     Dates: start: 201211
  9. CONCOR [Concomitant]
     Indication: CARDIAC DISORDER
     Route: 048
     Dates: start: 201211

REACTIONS (6)
  - Renal failure acute [Fatal]
  - Cardiac arrest [Fatal]
  - Respiratory failure [Fatal]
  - Lung infection [Unknown]
  - Fall [Unknown]
  - Cardiac arrest [Unknown]
